FAERS Safety Report 4333700-2 (Version None)
Quarter: 2004Q2

REPORT INFORMATION
  Report Type: 
  Country: None (occurrence: None)
  Receive Date: 20040406
  Receipt Date: 20040406
  Transmission Date: 20050107
  Serious: Yes (Death, Hospitalization)
  Sender: FDA-Public Use
  Company Number: None

PATIENT
  Age: 83 Year
  Sex: Male
  Weight: 67 kg

DRUGS (4)
  1. PROCRIT 40,000 U AMGEN [Suspect]
     Indication: ANAEMIA
     Dosage: 31,000 IN SQ QW
     Route: 058
     Dates: start: 20040309, end: 20040323
  2. GEMCITABINE [Concomitant]
  3. CLOPINOGREL [Concomitant]
  4. ENOXAPRIL [Concomitant]

REACTIONS (2)
  - PNEUMONIA [None]
  - PULMONARY OEDEMA [None]
